FAERS Safety Report 24592314 (Version 1)
Quarter: 2024Q4

REPORT INFORMATION
  Report Type: Spontaneous
  Country: US (occurrence: US)
  Receive Date: 20241108
  Receipt Date: 20241108
  Transmission Date: 20250115
  Serious: No
  Sender: GLAXOSMITHKLINE
  Company Number: US-GSK-US2024AMR134532

PATIENT

DRUGS (1)
  1. ALBUTEROL SULFATE [Suspect]
     Active Substance: ALBUTEROL SULFATE
     Indication: Asthma
     Dosage: UNK,90 MCG, 18G/200 METERED

REACTIONS (3)
  - Wrong technique in device usage process [Unknown]
  - Inappropriate schedule of product administration [Unknown]
  - Wrong technique in product usage process [Unknown]
